FAERS Safety Report 7496293-7 (Version None)
Quarter: 2011Q2

REPORT INFORMATION
  Report Type: 
  Country: None (occurrence: None)
  Receive Date: 20110523
  Receipt Date: 20100602
  Transmission Date: 20111010
  Serious: No
  Sender: FDA-Public Use
  Company Number: US-TYCO HEALTHCARE/MALLINCKRODT-T201001401

PATIENT

DRUGS (7)
  1. WARFARIN SODIUM [Concomitant]
     Dosage: 1 1/2 QD EXCEPT 2 ON FRIDAYS
     Route: 048
  2. PROPAFENONE HCL [Concomitant]
     Indication: HEART RATE IRREGULAR
     Dosage: 40 MG, BID
     Route: 048
  3. ZOCOR [Concomitant]
     Indication: BLOOD CHOLESTEROL ABNORMAL
     Dosage: 40 MG, QD
     Route: 048
  4. TOVIAZ [Concomitant]
     Indication: BLADDER DISORDER
     Dosage: 20 MG, QD
     Route: 048
  5. TYLENOL (CAPLET) [Concomitant]
     Indication: PAIN
     Dosage: 2 TABS PRN
     Route: 048
  6. TOFRANIL [Suspect]
     Indication: DEPRESSION
     Dosage: THREE 25 MG TABS (75MG) AT HS
     Route: 048
     Dates: start: 19700101, end: 20100501
  7. MULTIPLE VITAMINS [Concomitant]
     Dosage: 1 TAB QD

REACTIONS (6)
  - PRURITUS [None]
  - POOR QUALITY SLEEP [None]
  - LETHARGY [None]
  - NIGHT SWEATS [None]
  - ASTHENIA [None]
  - FEELING ABNORMAL [None]
